FAERS Safety Report 8937045 (Version 4)
Quarter: 2013Q1

REPORT INFORMATION
  Report Type: Spontaneous
  Country: CH (occurrence: CH)
  Receive Date: 20121130
  Receipt Date: 20130307
  Transmission Date: 20140127
  Serious: Yes (Other)
  Sender: FDA-Public Use
  Company Number: CH-AMGEN-CHESP2012076163

PATIENT
  Age: 55 Year
  Sex: Male

DRUGS (7)
  1. PROLIA [Suspect]
     Indication: BONE LOSS
     Dosage: 60 MG, Q6MO
     Route: 058
     Dates: start: 20120320
  2. XGEVA [Suspect]
     Indication: PROPHYLAXIS
     Dosage: 120 MG, QMO
     Route: 058
     Dates: start: 20120612, end: 20120925
  3. METFIN [Concomitant]
     Indication: DIABETES MELLITUS
     Dosage: UNK
     Dates: start: 2000
  4. CODIOVAN [Concomitant]
     Indication: HYPERTENSION
     Dosage: UNK
     Dates: start: 2000
  5. METO ZEROK [Concomitant]
     Indication: HYPERTENSION
     Dosage: UNK
     Dates: start: 2000
  6. PRAVALOTIN [Concomitant]
     Indication: HYPERCHOLESTEROLAEMIA
     Dosage: UNK
     Dates: start: 2000
  7. CALCIUM D3                         /00944201/ [Concomitant]
     Indication: PROPHYLAXIS
     Dosage: 1 G, QD
     Dates: start: 20120320

REACTIONS (2)
  - Osteonecrosis of jaw [Not Recovered/Not Resolved]
  - Osteomyelitis [Unknown]
